FAERS Safety Report 7714993-8 (Version None)
Quarter: 2011Q3

REPORT INFORMATION
  Report Type: 
  Country: None (occurrence: None)
  Receive Date: 20110829
  Receipt Date: 20110325
  Transmission Date: 20111222
  Serious: No
  Sender: FDA-Public Use
  Company Number: US-ASTRAZENECA-2011SE17010

PATIENT
  Sex: Female

DRUGS (2)
  1. LYRICA [Concomitant]
  2. VIMOVO [Suspect]
     Route: 048
     Dates: start: 20110322

REACTIONS (2)
  - HYPOAESTHESIA [None]
  - URINE OUTPUT DECREASED [None]
